FAERS Safety Report 10057104 (Version 2)
Quarter: 2014Q2

REPORT INFORMATION
  Report Type: Spontaneous
  Country: IT (occurrence: IT)
  Receive Date: 20140403
  Receipt Date: 20140414
  Transmission Date: 20141212
  Serious: Yes (Death, Hospitalization)
  Sender: FDA-Public Use
  Company Number: PHHY2014IT037962

PATIENT
  Sex: Female

DRUGS (4)
  1. FUROSEMIDE [Suspect]
     Route: 048
     Dates: start: 20131025, end: 20140225
  2. PRADAXA [Suspect]
     Indication: ATRIAL FIBRILLATION
     Dosage: 2 DF, QD
     Route: 048
     Dates: start: 20131025, end: 20140225
  3. ZAROXOLYN [Suspect]
     Route: 048
     Dates: start: 20131025, end: 20140225
  4. SAMYR [Concomitant]

REACTIONS (4)
  - Rectal haemorrhage [Fatal]
  - Hypokalaemia [Fatal]
  - Hyponatraemia [Fatal]
  - Renal failure acute [Fatal]
